FAERS Safety Report 10477255 (Version 2)
Quarter: 2014Q4

REPORT INFORMATION
  Report Type: Spontaneous
  Country: US (occurrence: US)
  Receive Date: 20140926
  Receipt Date: 20141121
  Transmission Date: 20150528
  Serious: Yes (Death, Other)
  Sender: FDA-Public Use
  Company Number: US-JNJFOC-20140915523

PATIENT
  Age: 32 Year
  Sex: Female
  Weight: 117.94 kg

DRUGS (4)
  1. VICODIN [Suspect]
     Active Substance: ACETAMINOPHEN\HYDROCODONE BITARTRATE
     Indication: MENISCUS INJURY
     Route: 065
     Dates: start: 20120808, end: 20120909
  2. TYLENOL COLD MULTI-SYMPTOM SEVERE [Suspect]
     Active Substance: ACETAMINOPHEN\DEXTROMETHORPHAN HYDROBROMIDE\GUAIFENESIN\PHENYLEPHRINE HYDROCHLORIDE
     Indication: UPPER RESPIRATORY TRACT INFECTION
     Route: 048
     Dates: start: 20120914, end: 20120925
  3. VICODIN [Suspect]
     Active Substance: ACETAMINOPHEN\HYDROCODONE BITARTRATE
     Indication: JOINT INJURY
     Route: 065
     Dates: start: 20120808, end: 20120909
  4. MULTIVITAMINS [Concomitant]
     Active Substance: VITAMINS
     Indication: PRODUCT USED FOR UNKNOWN INDICATION
     Route: 065

REACTIONS (15)
  - Metabolic acidosis [Unknown]
  - Seizure [Unknown]
  - Hypovolaemia [Unknown]
  - Death [Fatal]
  - Acute kidney injury [Unknown]
  - Hypoglycaemia [Unknown]
  - Septic shock [Unknown]
  - Hernia [Unknown]
  - Thrombocytosis [Unknown]
  - Coagulopathy [Unknown]
  - Toxicity to various agents [Unknown]
  - Respiratory failure [Unknown]
  - Hyperbilirubinaemia [Unknown]
  - Acute hepatic failure [Unknown]
  - Hepatic encephalopathy [Unknown]

NARRATIVE: CASE EVENT DATE: 201209
